FAERS Safety Report 7580254-3 (Version None)
Quarter: 2011Q2

REPORT INFORMATION
  Report Type: 
  Country: None (occurrence: None)
  Receive Date: 20110629
  Receipt Date: 20110620
  Transmission Date: 20111010
  Serious: Yes (Other)
  Sender: FDA-Public Use
  Company Number: US-BRACCO-005559

PATIENT
  Sex: Female
  Weight: 58.05 kg

DRUGS (100)
  1. MAGNEVIST [Suspect]
     Route: 042
     Dates: start: 20041203
  2. PROHANCE [Suspect]
     Indication: NUCLEAR MAGNETIC RESONANCE IMAGING
  3. MULTIHANCE [Suspect]
     Indication: NUCLEAR MAGNETIC RESONANCE IMAGING
     Route: 042
     Dates: start: 20080103, end: 20080103
  4. MULTIHANCE [Suspect]
     Indication: MUSCULAR WEAKNESS
     Dosage: ^17^
     Route: 042
     Dates: start: 20080103, end: 20080103
  5. MULTIHANCE [Suspect]
     Indication: HEADACHE
     Dosage: ^17^
     Route: 042
     Dates: start: 20080103, end: 20080103
  6. PROCRIT [Concomitant]
     Dates: start: 19990101
  7. CONTRAST MEDIA [Suspect]
     Dates: start: 20000830, end: 20000830
  8. COUMADIN [Concomitant]
     Dates: start: 19990101
  9. RANITIDINE [Concomitant]
  10. SYNTHROID [Concomitant]
  11. OMNISCAN [Suspect]
     Indication: IMAGING PROCEDURE
     Dates: start: 20000323
  12. RENA-VITE [Concomitant]
  13. TIZANIDINE HCL [Concomitant]
  14. PROCRIT [Concomitant]
  15. ACYCLOVIR [Concomitant]
  16. EPOGEN [Concomitant]
  17. MAGNEVIST [Suspect]
     Indication: MULTIPLE MYELOMA
     Route: 042
     Dates: start: 20061211
  18. MAGNEVIST [Suspect]
     Route: 042
     Dates: start: 20050629
  19. MULTIHANCE [Suspect]
     Indication: NUCLEAR MAGNETIC RESONANCE IMAGING BRAIN
     Route: 042
     Dates: start: 20080111, end: 20080111
  20. CONTRAST MEDIA [Suspect]
     Indication: HAEMORRHAGE INTRACRANIAL
     Dates: start: 20020423, end: 20020423
  21. CONTRAST MEDIA [Suspect]
     Indication: ARTERIOGRAM RENAL
     Dates: start: 20061211, end: 20061211
  22. PREDNISONE [Concomitant]
  23. OXYCONTIN [Concomitant]
  24. FOSAMAX [Concomitant]
  25. MAGNEVIST [Suspect]
     Indication: INTERVERTEBRAL DISC PROTRUSION
     Dates: start: 20020910
  26. MAGNEVIST [Suspect]
     Dates: start: 20080601
  27. METOPROLOL TARTRATE [Concomitant]
     Dates: start: 20090101
  28. CONTRAST MEDIA [Suspect]
     Indication: MULTIPLE MYELOMA
     Dates: start: 20000323, end: 20000323
  29. CONTRAST MEDIA [Suspect]
     Indication: KIDNEY ANASTOMOSIS
     Dates: start: 20041203, end: 20041203
  30. ZOFRAN [Concomitant]
  31. LASIX [Concomitant]
  32. OMNISCAN [Suspect]
     Indication: MULTIPLE MYELOMA
     Dates: start: 20010305
  33. GABAPENTIN [Concomitant]
  34. MYCELEX [Concomitant]
  35. THALOMID [Concomitant]
  36. MARINOL [Concomitant]
  37. OXYCODONE AND ACETAMINOPHEN [Concomitant]
  38. MAGNEVIST [Suspect]
     Indication: GAIT DISTURBANCE
     Route: 042
     Dates: start: 20051215, end: 20051215
  39. MAGNEVIST [Suspect]
     Route: 042
     Dates: start: 20001221
  40. OPTIMARK [Suspect]
     Indication: NUCLEAR MAGNETIC RESONANCE IMAGING
  41. CONTRAST MEDIA [Suspect]
     Dates: start: 20010305, end: 20010305
  42. LIPITOR [Concomitant]
  43. PAXIL [Concomitant]
  44. NEPHROCAPS [Concomitant]
     Dates: start: 20090101
  45. IMMUNE GLOBULIN NOS [Concomitant]
  46. SENOKOT [Concomitant]
  47. ZOLOFT [Concomitant]
  48. MAGNEVIST [Suspect]
     Indication: HEADACHE
     Route: 042
     Dates: start: 20020326
  49. MAGNEVIST [Suspect]
     Dates: start: 20030813
  50. MAGNEVIST [Suspect]
     Route: 042
     Dates: start: 20000830
  51. CONTRAST MEDIA [Suspect]
     Indication: ANGIOGRAM
     Dates: start: 20011108, end: 20011108
  52. CONTRAST MEDIA [Suspect]
     Dates: start: 20030813, end: 20030813
  53. CONTRAST MEDIA [Suspect]
     Dates: start: 20020910, end: 20020910
  54. CONTRAST MEDIA [Suspect]
     Dates: start: 19990107
  55. ZETIA [Concomitant]
  56. DILANTIN [Concomitant]
  57. ATIVAN [Concomitant]
  58. CLARITIN [Concomitant]
  59. OMNISCAN [Suspect]
     Indication: HAEMORRHAGE INTRACRANIAL
     Route: 042
     Dates: start: 19970718, end: 19970718
  60. CELLCEPT [Concomitant]
  61. IMITREX [Concomitant]
  62. OXYCODONE HCL [Concomitant]
  63. MAGNEVIST [Suspect]
     Indication: NUCLEAR MAGNETIC RESONANCE IMAGING
     Route: 042
     Dates: start: 20020318, end: 20020318
  64. MAGNEVIST [Suspect]
     Indication: RENAL VEIN THROMBOSIS
     Route: 042
     Dates: start: 20010103, end: 20010103
  65. MAGNEVIST [Suspect]
     Indication: BACK PAIN
     Route: 042
     Dates: start: 20021230, end: 20021230
  66. CONTRAST MEDIA [Suspect]
     Indication: RENAL TRANSPLANT
     Dates: start: 20080325, end: 20080325
  67. CONTRAST MEDIA [Suspect]
     Route: 042
     Dates: start: 20050629, end: 20050629
  68. CONTRAST MEDIA [Suspect]
     Dates: start: 19970718, end: 19970718
  69. CONTRAST MEDIA [Suspect]
     Dates: start: 19990915, end: 19990915
  70. CONTRAST MEDIA [Suspect]
  71. CONTRAST MEDIA [Suspect]
  72. CALCITRIOL [Concomitant]
  73. OMNISCAN [Suspect]
     Indication: NUCLEAR MAGNETIC RESONANCE IMAGING BRAIN
     Dates: start: 19980601, end: 19980601
  74. PROGRAF [Concomitant]
  75. ALUMINIUM OXIDE [Concomitant]
  76. KLONOPIN [Concomitant]
  77. FAMVIR [Concomitant]
  78. CONTRAST MEDIA [Suspect]
     Indication: NUCLEAR MAGNETIC RESONANCE IMAGING
     Dates: start: 20001221, end: 20001221
  79. CONTRAST MEDIA [Suspect]
     Dates: start: 19990615, end: 19990615
  80. RENAGEL [Concomitant]
     Dates: start: 19990101
  81. CHLORTHALIDONE [Concomitant]
  82. PRILOSEC [Concomitant]
  83. OXYCODONE HCL AND ACETAMINOPHEN [Concomitant]
  84. NEPHROVITE [Concomitant]
  85. FUROSEMIDE [Concomitant]
  86. LOPRESSOR [Concomitant]
  87. RENAPHRO [Concomitant]
  88. PHOSLO [Concomitant]
  89. MAGNEVIST [Suspect]
     Indication: RENAL FAILURE
     Route: 042
     Dates: start: 20040102, end: 20040102
  90. MAGNEVIST [Suspect]
     Dates: start: 20090103
  91. MULTIHANCE [Suspect]
     Indication: MULTIPLE MYELOMA
     Dosage: ^17^
     Route: 042
     Dates: start: 20080325, end: 20080325
  92. MULTIHANCE [Suspect]
     Indication: PAIN
     Dosage: ^17^
     Route: 042
     Dates: start: 20080103, end: 20080103
  93. IMMUNOSUPPRESSANTS [Concomitant]
  94. NEURONTIN [Concomitant]
  95. AMITRIPTYLINE [Concomitant]
  96. OMNISCAN [Suspect]
     Indication: DISEASE PROGRESSION
     Dates: start: 20011030
  97. OMNISCAN [Suspect]
     Indication: NUCLEAR MAGNETIC RESONANCE IMAGING
     Dates: start: 20011108
  98. ATENOLOL [Concomitant]
  99. ROCALTROL [Concomitant]
  100. SODIUM BICARBONATE [Concomitant]

REACTIONS (1)
  - NEPHROGENIC SYSTEMIC FIBROSIS [None]
